FAERS Safety Report 4727464-8 (Version None)
Quarter: 2005Q3

REPORT INFORMATION
  Report Type: 
  Country: None (occurrence: None)
  Receive Date: 20050725
  Receipt Date: 20050725
  Transmission Date: 20060218
  Serious: Yes (Life-Threatening, Hospitalization)
  Sender: FDA-Public Use
  Company Number: None

PATIENT
  Age: 79 Year
  Sex: Female

DRUGS (1)
  1. DIGOXIN [Suspect]
     Dosage: 0.25 MG   DAILY   ORAL
     Route: 048
     Dates: start: 20050301, end: 20050430

REACTIONS (3)
  - ARRHYTHMIA [None]
  - BRADYCARDIA [None]
  - MUSCULAR WEAKNESS [None]
